FAERS Safety Report 9160736 (Version 1)
Quarter: 2013Q1

REPORT INFORMATION
  Report Type: Spontaneous
  Country: CO (occurrence: None)
  Receive Date: 20130219
  Receipt Date: 20130219
  Transmission Date: 20140127
  Serious: Yes (Hospitalization)
  Sender: FDA-Public Use
  Company Number: 2013MA001077

PATIENT
  Age: 56 Year
  Sex: Female

DRUGS (12)
  1. NAPROXEN DELAYED-RELEASE TABLETS, 500 MG (PUREFAC) (NAPROXEN) [Suspect]
     Indication: OSTEOARTHRITIS
     Dates: start: 20090415
  2. IBUPROFEN ORAL SUSPENSION USP, 100 MG/5 ML (RX) (ALPHARMA) (IBUPROFEN) [Suspect]
     Dates: start: 20090415
  3. CELECOXIB (CELECOXIB) [Suspect]
     Indication: OSTEOARTHRITIS
     Dates: start: 20090415
  4. VANCOMYCIN (VANCOMYCIN) [Suspect]
     Indication: PNEUMONIA KLEBSIELLA
     Route: 042
     Dates: start: 20101018, end: 20101024
  5. MEROPENEM (MEROPENEM) [Suspect]
     Indication: PNEUMONIA
     Route: 042
  6. PREDNISOLONE (PREDNIOSOLONE) [Suspect]
     Indication: RHEUMATOID ARTHRITIS
     Dates: start: 20060101
  7. NEXIUM [Concomitant]
  8. LOVASTATIN [Concomitant]
  9. PREDNISONE [Concomitant]
  10. FUROSEMIDE [Concomitant]
  11. METOCLOPRAMIDE [Concomitant]
  12. CLONIDINE [Concomitant]

REACTIONS (17)
  - Acute respiratory distress syndrome [None]
  - Lung infiltration [None]
  - Pneumonia [None]
  - Hypocalcaemia [None]
  - Respiratory failure [None]
  - Anaemia [None]
  - Septic shock [None]
  - Renal failure [None]
  - C-reactive protein increased [None]
  - Pain [None]
  - Pneumonia [None]
  - Bacteraemia [None]
  - Neurogenic bladder [None]
  - Pneumonia mycoplasmal [None]
  - Klebsiella bacteraemia [None]
  - Phlebitis [None]
  - Polyneuropathy [None]
